FAERS Safety Report 10745145 (Version 1)
Quarter: 2015Q1

REPORT INFORMATION
  Report Type: Spontaneous
  Country: US (occurrence: None)
  Receive Date: 20150126
  Receipt Date: 20150126
  Transmission Date: 20150721
  Serious: Yes (Disabling)
  Sender: FDA-Public Use
  Company Number: None

PATIENT
  Age: 04 Week
  Sex: Male
  Weight: 16.33 kg

DRUGS (1)
  1. MIRALAX [Suspect]
     Active Substance: POLYETHYLENE GLYCOL 3350
     Indication: CONSTIPATION
     Route: 048

REACTIONS (8)
  - Chronic throat clearing [None]
  - Haematochezia [None]
  - Burning sensation [None]
  - Sleep terror [None]
  - Tic [None]
  - Anxiety [None]
  - Diarrhoea [None]
  - Cough [None]
